FAERS Safety Report 5346247-1 (Version None)
Quarter: 2007Q2

REPORT INFORMATION
  Report Type: 
  Country: None (occurrence: None)
  Receive Date: 20070420
  Receipt Date: 20060509
  Transmission Date: 20071010
  Serious: Yes (Death)
  Sender: FDA-Public Use
  Company Number: 06P-163-0325849-00

PATIENT
  Age: 24 Year
  Sex: Male
  Weight: 95.709 kg

DRUGS (2)
  1. DEPAKOTE [Suspect]
     Indication: CONVULSION
     Dosage: SEE IMAGE
     Route: 048
     Dates: start: 20000101, end: 20060210
  2. LEVETIRACETAM [Concomitant]

REACTIONS (1)
  - DEATH [None]
